FAERS Safety Report 5447288-6 (Version None)
Quarter: 2007Q3

REPORT INFORMATION
  Report Type: 
  Country: None (occurrence: None)
  Receive Date: 20070905
  Receipt Date: 20070905
  Transmission Date: 20080115
  Serious: Yes (Hospitalization)
  Sender: FDA-Public Use
  Company Number: None

PATIENT
  Sex: Female
  Weight: 68.63 kg

DRUGS (2)
  1. CARBOPLATIN [Suspect]
     Dosage: 866 MG
  2. TAXOL [Suspect]
     Dosage: 306 MG

REACTIONS (3)
  - FEBRILE NEUTROPENIA [None]
  - HAEMOGLOBIN DECREASED [None]
  - PLATELET COUNT DECREASED [None]
